FAERS Safety Report 5807138-2 (Version None)
Quarter: 2008Q3

REPORT INFORMATION
  Report Type: 
  Country: None (occurrence: None)
  Receive Date: 20080709
  Receipt Date: 20080709
  Transmission Date: 20090109
  Serious: Yes (Hospitalization)
  Sender: FDA-Public Use
  Company Number: None

PATIENT
  Sex: Female
  Weight: 95.2554 kg

DRUGS (1)
  1. GLUCOVANCE [Suspect]
     Dosage: DAILY PO
     Route: 048

REACTIONS (15)
  - ABDOMINAL PAIN [None]
  - ALANINE AMINOTRANSFERASE INCREASED [None]
  - ASPARTATE AMINOTRANSFERASE INCREASED [None]
  - BLEEDING TIME PROLONGED [None]
  - BLOOD ALKALINE PHOSPHATASE INCREASED [None]
  - DIARRHOEA [None]
  - FAECES DISCOLOURED [None]
  - GALLBLADDER OPERATION [None]
  - JAUNDICE [None]
  - LIVER DISORDER [None]
  - PROTHROMBIN TIME PROLONGED [None]
  - PRURITUS [None]
  - PYREXIA [None]
  - RED BLOOD CELL COUNT DECREASED [None]
  - SWELLING [None]
